FAERS Safety Report 11232618 (Version 2)
Quarter: 2016Q4

REPORT INFORMATION
  Report Type: Spontaneous
  Country: IN (occurrence: IN)
  Receive Date: 20150701
  Receipt Date: 20161003
  Transmission Date: 20170206
  Serious: Yes (Death, Other)
  Sender: FDA-Public Use
  Company Number: IN-BAYER-2015-364651

PATIENT
  Age: 24 Month
  Sex: Male

DRUGS (3)
  1. IMMUNGLOBULIN [IMMUNOGLOBULIN] [Suspect]
     Active Substance: HUMAN IMMUNOGLOBULIN G
     Indication: KAWASAKI^S DISEASE
     Dosage: 2 G/KG
     Route: 042
  2. ACETYLSALICYLIC ACID (} 100 MG) [Suspect]
     Active Substance: ASPIRIN
     Indication: KAWASAKI^S DISEASE
     Dosage: 50-80 MG/KG/DAY
  3. ACETYLSALICYLIC ACID (} 100 MG) [Suspect]
     Active Substance: ASPIRIN
     Indication: KAWASAKI^S DISEASE
     Dosage: 3-5 MG/KG/DAY

REACTIONS (7)
  - Hypoxia [Fatal]
  - Emphysema [None]
  - Acute respiratory distress syndrome [Fatal]
  - Aspiration [None]
  - Pneumonia aspiration [Fatal]
  - Seizure [None]
  - Off label use [None]
